FAERS Safety Report 9645400 (Version 1)
Quarter: 2013Q4

REPORT INFORMATION
  Report Type: Report from Study
  Country: CA (occurrence: CA)
  Receive Date: 20131025
  Receipt Date: 20131025
  Transmission Date: 20140711
  Serious: Yes (Other)
  Sender: FDA-Public Use
  Company Number: CA-JNJFOC-20131013627

PATIENT
  Age: 44 Year
  Sex: Male
  Weight: 83 kg

DRUGS (1)
  1. REMICADE [Suspect]
     Indication: CROHN^S DISEASE
     Dosage: 7-8 WEEKS
     Route: 042
     Dates: start: 20100202

REACTIONS (2)
  - Intestinal obstruction [Recovered/Resolved]
  - Skin plaque [Recovered/Resolved]
